FAERS Safety Report 5016636-3 (Version None)
Quarter: 2006Q2

REPORT INFORMATION
  Report Type: 
  Country: None (occurrence: None)
  Receive Date: 20060419
  Receipt Date: 20051117
  Transmission Date: 20061013
  Serious: No
  Sender: FDA-Public Use
  Company Number: USA0511112724

PATIENT
  Sex: Male

DRUGS (6)
  1. ALIMTA [Suspect]
     Indication: MESOTHELIOMA
     Dosage: 950 MG/M2
     Dates: start: 20041204
  2. CARBOPLATIN [Concomitant]
  3. DECADRON SRC [Concomitant]
  4. FOLIC ACID [Concomitant]
  5. VITAMIN B12 [Concomitant]
  6. DECADRON SRC [Concomitant]

REACTIONS (4)
  - EYE SWELLING [None]
  - RASH [None]
  - TINNITUS [None]
  - URTICARIA [None]
